FAERS Safety Report 20332201 (Version 1)
Quarter: 2022Q1

REPORT INFORMATION
  Report Type: Spontaneous
  Country: US (occurrence: None)
  Receive Date: 20220113
  Receipt Date: 20220113
  Transmission Date: 20220423
  Serious: No
  Sender: FDA-Public Use
  Company Number: None

PATIENT
  Age: 65 Year
  Sex: Female

DRUGS (4)
  1. CAPECITABINE [Suspect]
     Active Substance: CAPECITABINE
     Indication: Breast cancer
     Dosage: FREQUENCY : TWICE A DAY;?
     Route: 048
     Dates: start: 20220103
  2. GABAPENTIN [Concomitant]
     Active Substance: GABAPENTIN
  3. BENZONATATE [Concomitant]
     Active Substance: BENZONATATE
  4. AMLODIPINE [Concomitant]
     Active Substance: AMLODIPINE BESYLATE

REACTIONS (8)
  - Cough [None]
  - Stress urinary incontinence [None]
  - Loss of consciousness [None]
  - Fall [None]
  - Diarrhoea [None]
  - Abdominal discomfort [None]
  - Neuropathy peripheral [None]
  - Asthenia [None]

NARRATIVE: CASE EVENT DATE: 20220103
